FAERS Safety Report 8789079 (Version 2)
Quarter: 2013Q1

REPORT INFORMATION
  Report Type: Report from Study
  Country: JP (occurrence: JP)
  Receive Date: 20120917
  Receipt Date: 20130117
  Transmission Date: 20140127
  Serious: No
  Sender: FDA-Public Use
  Company Number: JP-009507513-1209JPN001905

PATIENT
  Sex: 0

DRUGS (13)
  1. PEGINTRON [Suspect]
     Indication: CHRONIC HEPATITIS C
     Dosage: 1.5 MICROGRAM PER KILOGRAM, UNK
     Route: 058
     Dates: start: 20120307
  2. REBETOL [Suspect]
     Indication: CHRONIC HEPATITIS C
     Dosage: 400 MG, QD
     Route: 048
     Dates: start: 20120307, end: 20120326
  3. REBETOL [Suspect]
     Dosage: 200 MG, QD
     Route: 048
     Dates: start: 20120327, end: 20120409
  4. REBETOL [Suspect]
     Dosage: 100 MG, QD
     Route: 048
     Dates: start: 20120410, end: 20120522
  5. REBETOL [Suspect]
     Dosage: 200 MG, UNK
     Route: 048
     Dates: start: 20120523, end: 20120806
  6. REBETOL [Suspect]
     Dosage: 200 MG, QOD
     Route: 048
     Dates: start: 20120807, end: 20120813
  7. REBETOL [Suspect]
     Dosage: 200 MG, QD
     Route: 048
     Dates: start: 20120814
  8. TELAVIC [Suspect]
     Indication: CHRONIC HEPATITIS C
     Dosage: 1500 MG,  QD
     Route: 048
     Dates: start: 20120307, end: 20120528
  9. URSO [Concomitant]
     Indication: CHRONIC HEPATITIS C
     Dosage: FORMULATION:POR 300 MG, QD, POR
     Route: 048
  10. DIOVAN [Concomitant]
     Indication: HYPERTENSION
     Dosage: 80 MG, QD
     Route: 048
  11. AMLODIN OD [Concomitant]
     Indication: HYPERTENSION
     Dosage: 5 MG, QD
     Route: 048
  12. AMLODIN OD [Concomitant]
     Dosage: 2.5 UNK, UNK
     Route: 048
  13. URSODIOL [Concomitant]
     Indication: CHRONIC HEPATITIS C
     Dosage: 300 MG, UNK
     Route: 048

REACTIONS (1)
  - Retinopathy [Recovered/Resolved]
